FAERS Safety Report 4688574-7 (Version None)
Quarter: 2005Q2

REPORT INFORMATION
  Report Type: 
  Country: None (occurrence: None)
  Receive Date: 20050613
  Receipt Date: 20050603
  Transmission Date: 20051028
  Serious: Yes (Hospitalization)
  Sender: FDA-Public Use
  Company Number: 200511882FR

PATIENT
  Age: 43 Year
  Sex: Male

DRUGS (10)
  1. FLAGYL [Suspect]
     Indication: SPONDYLOARTHROPATHY
     Route: 048
     Dates: start: 20050101, end: 20050422
  2. TAVANIC [Suspect]
     Route: 048
     Dates: start: 20050101
  3. LAROXYL [Concomitant]
     Route: 048
  4. RIVOTRIL [Concomitant]
     Route: 048
  5. NEURONTIN [Concomitant]
     Route: 048
  6. EFFEXOR [Concomitant]
     Route: 048
  7. AMOXICILLIN [Concomitant]
     Indication: SPONDYLOARTHROPATHY
     Route: 048
     Dates: start: 20050101
  8. MOTILIUM [Concomitant]
  9. TERCIAN [Concomitant]
  10. ACTISKENAN [Concomitant]

REACTIONS (4)
  - DYSAESTHESIA [None]
  - MUSCULAR WEAKNESS [None]
  - PARAESTHESIA [None]
  - POLYNEUROPATHY [None]
